FAERS Safety Report 4441158-8 (Version None)
Quarter: 2004Q3

REPORT INFORMATION
  Report Type: 
  Country: None (occurrence: None)
  Receive Date: 20040728
  Receipt Date: 20040414
  Transmission Date: 20050211
  Serious: No
  Sender: FDA-Public Use
  Company Number: USA040464900

PATIENT
  Age: 15 Year
  Sex: Female
  Weight: 66 kg

DRUGS (4)
  1. STRATTERA [Suspect]
     Indication: ATTENTION DEFICIT/HYPERACTIVITY DISORDER
     Dosage: 40 MG
     Dates: start: 20040411
  2. ORAL CONTRACEPTIVE NOS [Concomitant]
  3. ZYRTEC [Concomitant]
  4. .. [Concomitant]

REACTIONS (5)
  - COLD SWEAT [None]
  - FLUSHING [None]
  - INSOMNIA [None]
  - MEDICATION ERROR [None]
  - VOMITING [None]
